FAERS Safety Report 24623946 (Version 1)
Quarter: 2024Q4

REPORT INFORMATION
  Report Type: Spontaneous
  Country: US (occurrence: None)
  Receive Date: 20241114
  Receipt Date: 20241114
  Transmission Date: 20250114
  Serious: Yes (Death)
  Sender: Public
  Company Number: None

PATIENT
  Age: 63 Year
  Sex: Female

DRUGS (8)
  1. DUPIXENT [Suspect]
     Active Substance: DUPILUMAB
     Indication: Eczema
     Dosage: 2 ML EVERY 2 WEEKS ?
     Route: 058
     Dates: start: 20241023
  2. AMITRIPTYLINE [Concomitant]
     Active Substance: AMITRIPTYLINE
  3. BUMETANIDE [Concomitant]
     Active Substance: BUMETANIDE
  4. CLOBETASOL PROP [Concomitant]
  5. ENTRESTO [Concomitant]
     Active Substance: SACUBITRIL\VALSARTAN
  6. MIRTAZAPINE [Concomitant]
     Active Substance: MIRTAZAPINE
  7. PREGABALIN [Concomitant]
     Active Substance: PREGABALIN
  8. TIZANIDINE [Concomitant]
     Active Substance: TIZANIDINE

REACTIONS (1)
  - Death [None]

NARRATIVE: CASE EVENT DATE: 20240107
